FAERS Safety Report 14667028 (Version 1)
Quarter: 2018Q1

REPORT INFORMATION
  Report Type: Other
  Country: DE (occurrence: DE)
  Receive Date: 20180322
  Receipt Date: 20180322
  Transmission Date: 20180509
  Serious: Yes (Other)
  Sender: FDA-Public Use
  Company Number: DE-LUPIN PHARMACEUTICALS INC.-2018-02045

PATIENT
  Age: 1 Day
  Sex: Male
  Weight: 3.33 kg

DRUGS (2)
  1. PAROXETINE. [Suspect]
     Active Substance: PAROXETINE
     Indication: DEPRESSION
     Dosage: 30 MG, QD
     Route: 064
     Dates: start: 20161222, end: 20170922
  2. PAROXETINE. [Suspect]
     Active Substance: PAROXETINE
     Dosage: 5 MG, QD
     Route: 064
     Dates: start: 20161222, end: 20170922

REACTIONS (2)
  - Kidney duplex [Not Recovered/Not Resolved]
  - Foetal exposure during pregnancy [Unknown]

NARRATIVE: CASE EVENT DATE: 20170922
